FAERS Safety Report 9654253 (Version 1)
Quarter: 2013Q4

REPORT INFORMATION
  Report Type: Spontaneous
  Country: US (occurrence: None)
  Receive Date: 20131028
  Receipt Date: 20131028
  Transmission Date: 20140711
  Serious: Yes (Death)
  Sender: FDA-Public Use
  Company Number: 20130084

PATIENT
  Age: 79 Year
  Sex: Male

DRUGS (1)
  1. SUBSYS (FENTANYL SUBLINGUAL SPRAY) 200MCG, INSYS THERAPEUTICS [Suspect]
     Indication: CANCER PAIN
     Route: 060

REACTIONS (1)
  - Terminal state [None]
